FAERS Safety Report 6528364-3 (Version None)
Quarter: 2010Q1

REPORT INFORMATION
  Report Type: 
  Country: None (occurrence: None)
  Receive Date: 20100106
  Receipt Date: 20100105
  Transmission Date: 20100710
  Serious: Yes (Life-Threatening, Hospitalization, Other)
  Sender: FDA-Public Use
  Company Number: PHHY2009GB06439

PATIENT
  Sex: Male

DRUGS (13)
  1. CLOZARIL [Suspect]
     Indication: SCHIZOPHRENIA
     Dosage: 600 MG DAILY
     Route: 048
     Dates: start: 20031202
  2. CLOZARIL [Suspect]
     Dosage: WEEK'S SUPPLY OF MEDICATION
     Route: 048
     Dates: start: 20090217
  3. CLOZARIL [Suspect]
     Dosage: UNK
     Route: 048
  4. CLOMIPRAMINE [Suspect]
     Indication: DEPRESSION
     Dosage: UNK
     Dates: start: 20090217
  5. CLOMIPRAMINE [Suspect]
     Indication: ANXIETY
     Dosage: 200 MG ON
     Route: 048
  6. CLOMIPRAMINE [Suspect]
     Dosage: WEEK'S SUPPLY OF MEDICATION
     Dates: start: 20090217
  7. HYOSCINE (NCH) [Suspect]
     Dosage: UNK
     Dates: start: 20090217
  8. SENNA (NCH) [Suspect]
     Indication: CONSTIPATION
     Route: 048
  9. METFORMIN HYDROCHLORIDE [Suspect]
     Indication: TYPE 2 DIABETES MELLITUS
     Dosage: 500 MG, TID
     Route: 048
     Dates: start: 20090217
  10. SIMVASTATIN [Suspect]
     Indication: BLOOD CHOLESTEROL INCREASED
     Dosage: 40 MG, QHS
     Route: 048
     Dates: start: 20090217
  11. LISINOPRIL [Suspect]
     Indication: HYPERTENSION
     Dosage: 5 MG, QD
     Route: 048
     Dates: start: 20090217
  12. OMEPRAZOLE [Suspect]
     Dosage: UNK
     Dates: start: 20090217
  13. THIAMINE HCL [Concomitant]
     Dosage: 100 MG, TID
     Route: 048

REACTIONS (6)
  - AGITATION [None]
  - COMA SCALE ABNORMAL [None]
  - MECHANICAL VENTILATION [None]
  - NEUTROPHIL COUNT INCREASED [None]
  - OVERDOSE [None]
  - WHITE BLOOD CELL COUNT INCREASED [None]
